FAERS Safety Report 25823148 (Version 3)
Quarter: 2025Q4

REPORT INFORMATION
  Report Type: Report from Study
  Country: GB (occurrence: GB)
  Receive Date: 20250919
  Receipt Date: 20251017
  Transmission Date: 20260118
  Serious: Yes (Other)
  Sender: TEVA
  Company Number: GB-TEVA-VS-3372207

PATIENT
  Age: 35 Year
  Sex: Female

DRUGS (1)
  1. COPAXONE [Suspect]
     Active Substance: GLATIRAMER ACETATE
     Indication: Multiple sclerosis
     Dosage: DOSAGE: 40 MG/ML
     Route: 065
     Dates: start: 20250709, end: 2025

REACTIONS (3)
  - Liver disorder [Recovered/Resolved]
  - Malaise [Recovered/Resolved]
  - Liver function test decreased [Recovered/Resolved]

NARRATIVE: CASE EVENT DATE: 20250101
